FAERS Safety Report 5951058-X (Version None)
Quarter: 2008Q4

REPORT INFORMATION
  Report Type: 
  Country: None (occurrence: None)
  Receive Date: 20081112
  Receipt Date: 20081106
  Transmission Date: 20090506
  Serious: Yes (Life-Threatening)
  Sender: FDA-Public Use
  Company Number: ZA-GILEAD-2008-0018881

PATIENT
  Sex: Female

DRUGS (5)
  1. TRUVADA [Suspect]
     Indication: ANTIRETROVIRAL THERAPY
     Route: 048
     Dates: start: 20080731
  2. EFAVIRENZ [Suspect]
  3. CENTRUM [Concomitant]
  4. PURBAC DS [Concomitant]
  5. ALUVIA [Concomitant]

REACTIONS (1)
  - BLOOD LACTIC ACID INCREASED [None]
